FAERS Safety Report 9029462 (Version 1)
Quarter: 2013Q1

REPORT INFORMATION
  Report Type: Spontaneous
  Country: US (occurrence: US)
  Receive Date: 20130125
  Receipt Date: 20130125
  Transmission Date: 20140127
  Serious: Yes (Life-Threatening, Hospitalization)
  Sender: FDA-Public Use
  Company Number: US-009507513-1301USA010483

PATIENT
  Age: 9 Year
  Sex: Male

DRUGS (6)
  1. CARBIDOPA (+) LEVODOPA [Suspect]
     Indication: DYSTONIA
     Dosage: 25/100 MG, TID
  2. CARBIDOPA (+) LEVODOPA [Suspect]
     Dosage: 10/100 MG, TID
  3. BACLOFEN [Concomitant]
     Indication: MUSCLE SPASTICITY
     Dosage: 20 MG, TID
     Route: 048
  4. BACLOFEN [Concomitant]
     Dosage: 20 MG, QID
  5. CLONAZEPAM [Concomitant]
     Indication: MUSCLE SPASTICITY
     Dosage: 0.75 MG, TID
  6. CLONAZEPAM [Concomitant]
     Dosage: 1 MG, UNK

REACTIONS (1)
  - Neuroleptic malignant syndrome [Recovered/Resolved]
